FAERS Safety Report 4580244-9 (Version None)
Quarter: 2005Q1

REPORT INFORMATION
  Report Type: 
  Country: None (occurrence: None)
  Receive Date: 20050214
  Receipt Date: 20041012
  Transmission Date: 20050727
  Serious: Yes (Disabling)
  Sender: FDA-Public Use
  Company Number: FR-GLAXOSMITHKLINE-B0347849A

PATIENT
  Age: 41 Year
  Sex: Female

DRUGS (10)
  1. ZELITREX [Suspect]
     Indication: ANTIVIRAL PROPHYLAXIS
     Dosage: 6G PER DAY
     Route: 048
     Dates: start: 20040518, end: 20040929
  2. CELLCEPT [Concomitant]
     Indication: TRANSPLANT
     Dosage: 500MG TWICE PER DAY
     Route: 048
     Dates: start: 20040518
  3. PROGRAF [Concomitant]
     Indication: TRANSPLANT
     Dosage: 4MG TWICE PER DAY
     Route: 048
     Dates: start: 20040524
  4. CORTANCYL [Concomitant]
     Indication: TRANSPLANT
     Route: 048
     Dates: start: 20040518, end: 20040816
  5. BACTRIM DS [Concomitant]
     Indication: INFECTION PROPHYLAXIS
     Route: 048
     Dates: start: 20040518, end: 20040816
  6. NIZATIDINE [Concomitant]
     Indication: PROPHYLAXIS
     Dosage: 150MG PER DAY
     Route: 048
     Dates: start: 20040518, end: 20040816
  7. PHOSPHALUGEL [Concomitant]
     Indication: PROPHYLAXIS
     Route: 048
     Dates: start: 20040518, end: 20040715
  8. FUNGIZONE [Concomitant]
     Dosage: 1TSP THREE TIMES PER DAY
     Route: 048
     Dates: start: 20040518, end: 20040715
  9. STILNOX [Concomitant]
     Route: 048
     Dates: start: 20040518, end: 20040715
  10. SODIUM BICARBONATE IN PLASTIC CONTAINER [Concomitant]
     Indication: METABOLIC ACIDOSIS
     Dosage: 1G SIX TIMES PER DAY
     Route: 048
     Dates: start: 20040620

REACTIONS (2)
  - BURNING SENSATION [None]
  - POLYNEUROPATHY [None]
